FAERS Safety Report 24120667 (Version 1)
Quarter: 2024Q3

REPORT INFORMATION
  Report Type: Spontaneous
  Country: DE (occurrence: DE)
  Receive Date: 20240722
  Receipt Date: 20240722
  Transmission Date: 20241017
  Serious: Yes (Other)
  Sender: ASCEND
  Company Number: DE-Ascend Therapeutics US, LLC-2159322

PATIENT
  Age: 48 Year
  Sex: Female

DRUGS (3)
  1. ESTROGEL [Suspect]
     Active Substance: ESTRADIOL
     Indication: Menopausal symptoms
     Route: 065
  2. ESTRADIOL HEMIHYDRATE [Suspect]
     Active Substance: ESTRADIOL HEMIHYDRATE
     Route: 065
  3. PROGESTERONE [Suspect]
     Active Substance: PROGESTERONE
     Route: 065

REACTIONS (1)
  - Benign breast neoplasm [Unknown]
